FAERS Safety Report 6618834-1 (Version None)
Quarter: 2010Q1

REPORT INFORMATION
  Report Type: 
  Country: None (occurrence: None)
  Receive Date: 20100305
  Receipt Date: 20100305
  Transmission Date: 20100710
  Serious: Yes (Other)
  Sender: FDA-Public Use
  Company Number: None

PATIENT
  Age: 61 Year
  Sex: Female
  Weight: 93.8946 kg

DRUGS (1)
  1. TELAVANCIN HYDROCHLORIDE [Suspect]
     Indication: STAPHYLOCOCCAL INFECTION
     Dosage: 900 MG DAILY INTRACAVERNOUS
     Route: 017
     Dates: start: 20100128, end: 20100201

REACTIONS (1)
  - BLOOD CREATININE INCREASED [None]
